FAERS Safety Report 17105491 (Version 1)
Quarter: 2019Q4

REPORT INFORMATION
  Report Type: Spontaneous
  Country: US (occurrence: US)
  Receive Date: 20191203
  Receipt Date: 20191203
  Transmission Date: 20200122
  Serious: No
  Sender: FDA-Public Use
  Company Number: US-AMGEN-USASP2019197433

PATIENT
  Age: 70 Year
  Sex: Female

DRUGS (1)
  1. PROLIA [Suspect]
     Active Substance: DENOSUMAB
     Indication: OSTEOPOROSIS POSTMENOPAUSAL
     Dosage: 60 MILLIGRAM
     Route: 065
     Dates: start: 20191120

REACTIONS (6)
  - Pain in jaw [Unknown]
  - Swelling face [Unknown]
  - Mass [Unknown]
  - Back pain [Unknown]
  - Feeling hot [Unknown]
  - Arthralgia [Unknown]

NARRATIVE: CASE EVENT DATE: 201911
